FAERS Safety Report 17711305 (Version 1)
Quarter: 2020Q2

REPORT INFORMATION
  Report Type: Spontaneous
  Country: DE (occurrence: DE)
  Receive Date: 20200427
  Receipt Date: 20200427
  Transmission Date: 20200714
  Serious: Yes (Hospitalization)
  Sender: FDA-Public Use
  Company Number: DE-PFIZER INC-2020162891

PATIENT
  Age: 51 Year
  Sex: Female

DRUGS (2)
  1. EPIRUBICIN HCL [Suspect]
     Active Substance: EPIRUBICIN HYDROCHLORIDE
     Indication: BREAST NEOPLASM
     Dosage: UNK MG (LAST 30DEC2019)
  2. CYCLOPHOSPHAMID [Suspect]
     Active Substance: CYCLOPHOSPHAMIDE
     Indication: BREAST NEOPLASM
     Dosage: UNK MG (LAST 30DEC2019)

REACTIONS (4)
  - Diarrhoea [Unknown]
  - General physical health deterioration [Unknown]
  - Haematochezia [Unknown]
  - Anaemia [Unknown]
